FAERS Safety Report 7646394-5 (Version None)
Quarter: 2011Q3

REPORT INFORMATION
  Report Type: 
  Country: None (occurrence: None)
  Receive Date: 20110725
  Receipt Date: 20110707
  Transmission Date: 20111222
  Serious: Yes (Other)
  Sender: FDA-Public Use
  Company Number: JHP201100325

PATIENT
  Age: 69 Year
  Sex: Male

DRUGS (11)
  1. DIAZEPAM [Concomitant]
  2. BICARBONATE (SODIUM BICARBONATE) [Concomitant]
  3. PROCAINAMIDE [Concomitant]
  4. PROPOFOL [Concomitant]
  5. MANNITOL [Concomitant]
  6. BRETYLIUM (BRETYLIUM) [Concomitant]
  7. DANTROLENE SODIUM [Suspect]
     Indication: HYPERTHERMIA MALIGNANT
     Dosage: 1100 MG, TOTAL, INTRAVENOUS
     Route: 042
  8. PEPCID [Concomitant]
  9. LASIX [Concomitant]
  10. DESFLURANE [Concomitant]
  11. BUPIVACAINE HCL [Concomitant]

REACTIONS (5)
  - RENAL IMPAIRMENT [None]
  - PULMONARY OEDEMA [None]
  - MUSCULAR WEAKNESS [None]
  - CARDIAC DISORDER [None]
  - HEPATIC FUNCTION ABNORMAL [None]
